FAERS Safety Report 18526725 (Version 5)
Quarter: 2021Q4

REPORT INFORMATION
  Report Type: Spontaneous
  Country: JP (occurrence: JP)
  Receive Date: 20201120
  Receipt Date: 20211214
  Transmission Date: 20220303
  Serious: No
  Sender: FDA-Public Use
  Company Number: JP-UCBSA-2020046250

PATIENT
  Age: 85 Year
  Sex: Female
  Weight: 42 kg

DRUGS (8)
  1. VIMPAT [Suspect]
     Active Substance: LACOSAMIDE
     Indication: Epilepsy
     Dosage: 50 MILLIGRAM, 2X/DAY (BID)
     Route: 048
     Dates: start: 20201024, end: 20201030
  2. VIMPAT [Suspect]
     Active Substance: LACOSAMIDE
     Dosage: 100 MILLIGRAM, 2X/DAY (BID)
     Route: 048
     Dates: start: 20201031, end: 20201105
  3. VIMPAT [Suspect]
     Active Substance: LACOSAMIDE
     Dosage: 50 MILLIGRAM, 2X/DAY (BID)
     Route: 048
     Dates: start: 20201106, end: 20201110
  4. FYCOMPA [Concomitant]
     Active Substance: PERAMPANEL
     Indication: Product used for unknown indication
     Route: 048
  5. ELIQUIS [Concomitant]
     Active Substance: APIXABAN
     Indication: Product used for unknown indication
     Route: 048
  6. IRBESARTAN [Concomitant]
     Active Substance: IRBESARTAN
     Indication: Product used for unknown indication
  7. LANSOPRAZOLE [Concomitant]
     Active Substance: LANSOPRAZOLE
     Indication: Product used for unknown indication
  8. POLAPREZINC [Concomitant]
     Active Substance: POLAPREZINC
     Indication: Product used for unknown indication

REACTIONS (1)
  - Atrioventricular block [Recovering/Resolving]

NARRATIVE: CASE EVENT DATE: 20201102
